FAERS Safety Report 15260292 (Version 1)
Quarter: 2018Q3

REPORT INFORMATION
  Report Type: Spontaneous
  Country: CA (occurrence: CA)
  Receive Date: 20180809
  Receipt Date: 20180809
  Transmission Date: 20181010
  Serious: Yes (Hospitalization)
  Sender: FDA-Public Use
  Company Number: CA-MYLANLABS-2018M1059967

PATIENT
  Age: 22 Year
  Sex: Male

DRUGS (1)
  1. PALIPERIDONE. [Suspect]
     Active Substance: PALIPERIDONE
     Indication: SCHIZOPHRENIA
     Dosage: FOR PAST 6 MONTHS
     Route: 065

REACTIONS (2)
  - Pulmonary embolism [Recovered/Resolved]
  - Hyperprolactinaemia [Recovered/Resolved]
